FAERS Safety Report 13178545 (Version 2)
Quarter: 2017Q1

REPORT INFORMATION
  Report Type: Spontaneous
  Country: IT (occurrence: IT)
  Receive Date: 20170202
  Receipt Date: 20170207
  Transmission Date: 20170428
  Serious: Yes (Other)
  Sender: FDA-Public Use
  Company Number: IT-HORIZON-PRE-0037-2017

PATIENT
  Age: 76 Year
  Sex: Female

DRUGS (1)
  1. LODOTRA [Suspect]
     Active Substance: PREDNISONE
     Indication: PERIARTHRITIS
     Dosage: 1 UNIT, SINGLE
     Route: 048
     Dates: start: 20161031, end: 20161031

REACTIONS (2)
  - Abdominal pain [Unknown]
  - Diarrhoea [Unknown]

NARRATIVE: CASE EVENT DATE: 20161031
